FAERS Safety Report 5004866-6 (Version None)
Quarter: 2006Q2

REPORT INFORMATION
  Report Type: 
  Country: None (occurrence: None)
  Receive Date: 20060517
  Receipt Date: 20051020
  Transmission Date: 20061013
  Serious: Yes (Hospitalization)
  Sender: FDA-Public Use
  Company Number: US-MERCK-0510USA08466

PATIENT
  Age: 55 Year
  Sex: Male
  Weight: 164 kg

DRUGS (5)
  1. VIOXX [Suspect]
     Indication: ARTHRITIS
     Route: 048
     Dates: start: 20010501, end: 20040929
  2. ASPIRIN [Concomitant]
     Route: 065
     Dates: start: 19930101
  3. ZOCOR [Concomitant]
     Indication: BLOOD CHOLESTEROL INCREASED
     Route: 065
     Dates: start: 19930101
  4. LOPRESSOR [Concomitant]
     Indication: BLOOD PRESSURE
     Route: 065
  5. AVAPRO [Concomitant]
     Indication: BLOOD PRESSURE
     Route: 065

REACTIONS (4)
  - ARTHRITIS [None]
  - DEPRESSION [None]
  - HEART RATE IRREGULAR [None]
  - MYOCARDIAL INFARCTION [None]
